FAERS Safety Report 18942309 (Version 2)
Quarter: 2021Q1

REPORT INFORMATION
  Report Type: Report from Study
  Country: US (occurrence: US)
  Receive Date: 20210225
  Receipt Date: 20210308
  Transmission Date: 20210420
  Serious: Yes (Other)
  Sender: FDA-Public Use
  Company Number: US-TAKEDA-US202027364

PATIENT
  Age: 40 Year
  Sex: Female

DRUGS (1)
  1. HUMAN NORMAL IMMUNOGLOBULIN; LIQUID [Suspect]
     Active Substance: HUMAN IMMUNOGLOBULIN G
     Indication: PRIMARY IMMUNODEFICIENCY SYNDROME
     Dosage: 25 GRAM, 1X A MONTH
     Route: 042

REACTIONS (7)
  - Post procedural infection [Unknown]
  - Exposure during pregnancy [Unknown]
  - Stress cardiomyopathy [Unknown]
  - Near death experience [Unknown]
  - Premature delivery [Unknown]
  - Wrong product administered [Recovered/Resolved]
  - Myocardial infarction [Unknown]

NARRATIVE: CASE EVENT DATE: 202103
